FAERS Safety Report 18057344 (Version 1)
Quarter: 2020Q3

REPORT INFORMATION
  Report Type: Other
  Country: DE (occurrence: DE)
  Receive Date: 20200723
  Receipt Date: 20200723
  Transmission Date: 20201103
  Serious: Yes (Other)
  Sender: FDA-Public Use
  Company Number: DE-ROCHE-2628472

PATIENT
  Age: 49 Year
  Sex: Male

DRUGS (10)
  1. PANTOPRAZOL [Concomitant]
     Active Substance: PANTOPRAZOLE SODIUM
  2. SATIVEX [Concomitant]
     Active Substance: NABIXIMOLS
  3. ZOPICLON [Concomitant]
     Active Substance: ZOPICLONE
  4. DIAZEPAM. [Concomitant]
     Active Substance: DIAZEPAM
  5. OCREVUS [Suspect]
     Active Substance: OCRELIZUMAB
     Indication: RELAPSING-REMITTING MULTIPLE SCLEROSIS
     Route: 042
     Dates: start: 20200604
  6. SALBUTAMOL [Concomitant]
     Active Substance: ALBUTEROL
  7. OCREVUS [Suspect]
     Active Substance: OCRELIZUMAB
     Route: 042
     Dates: start: 20200625
  8. DOXEPIN [Concomitant]
     Active Substance: DOXEPIN
  9. NOVAMINSULFON [Concomitant]
     Active Substance: METAMIZOLE
  10. ELONTRIL [Concomitant]
     Active Substance: BUPROPION HYDROCHLORIDE

REACTIONS (7)
  - Fall [Unknown]
  - Mental status changes [Not Recovered/Not Resolved]
  - Mood swings [Not Recovered/Not Resolved]
  - Apathy [Not Recovered/Not Resolved]
  - Suicidal ideation [Not Recovered/Not Resolved]
  - Rib fracture [Not Recovered/Not Resolved]
  - Muscle spasticity [Unknown]

NARRATIVE: CASE EVENT DATE: 20200604
